FAERS Safety Report 9918228 (Version 3)
Quarter: 2014Q2

REPORT INFORMATION
  Report Type: Report from Study
  Country: FR (occurrence: FR)
  Receive Date: 20140224
  Receipt Date: 20140618
  Transmission Date: 20141212
  Serious: Yes (Death, Other)
  Sender: FDA-Public Use
  Company Number: FR-ROCHE-1342618

PATIENT
  Age: 76 Year
  Sex: Female
  Weight: 65 kg

DRUGS (2)
  1. ZELBORAF [Suspect]
     Indication: MALIGNANT MELANOMA
     Dosage: THE PATIENT 4 DOSES IN THE MORNING AND 4 DOSES IN THE EVENING THEN 3 DOSES IN THE MORNING ANDSTARTED
     Route: 048
     Dates: start: 20140115
  2. ZELBORAF [Suspect]
     Indication: METASTASES TO LUNG

REACTIONS (4)
  - Brain neoplasm [Fatal]
  - Pruritus generalised [Not Recovered/Not Resolved]
  - Generalised erythema [Not Recovered/Not Resolved]
  - Neoplasm skin [Not Recovered/Not Resolved]
